FAERS Safety Report 7573531-3 (Version None)
Quarter: 2011Q2

REPORT INFORMATION
  Report Type: 
  Country: None (occurrence: None)
  Receive Date: 20110627
  Receipt Date: 20110622
  Transmission Date: 20111010
  Serious: Yes (Death)
  Sender: FDA-Public Use
  Company Number: PHHY2011AR55593

PATIENT
  Sex: Male

DRUGS (1)
  1. EXFORGE [Suspect]
     Indication: BLOOD PRESSURE INCREASED
     Dosage: 1 DF (VALSARTAN/ AMLODIPINE)

REACTIONS (2)
  - HEPATIC NEOPLASM MALIGNANT [None]
  - MYOCARDIAL INFARCTION [None]
